FAERS Safety Report 8802823 (Version 1)
Quarter: 2012Q4

REPORT INFORMATION
  Report Type: 
  Country: US (occurrence: US)
  Receive Date: 20120921
  Receipt Date: 20120921
  Transmission Date: 20130627
  Serious: No
  Sender: FDA-Public Use
  Company Number: US-009507513-1209USA003850

PATIENT
  Sex: Male

DRUGS (2)
  1. VICTRELIS [Suspect]
     Indication: HEPATITIS C
     Dosage: 800 mg, tid
     Route: 048
     Dates: start: 20120810, end: 20120831
  2. SUBOXONE [Concomitant]

REACTIONS (4)
  - Influenza like illness [Unknown]
  - Depressed mood [Unknown]
  - Drug dependence [Unknown]
  - Rash [Unknown]
